FAERS Safety Report 9060974 (Version 1)
Quarter: 2013Q1

REPORT INFORMATION
  Report Type: Spontaneous
  Country: US (occurrence: US)
  Receive Date: 20130213
  Receipt Date: 20130213
  Transmission Date: 20140127
  Serious: Yes (Death)
  Sender: FDA-Public Use
  Company Number: US-AMGEN-USASP2013008287

PATIENT
  Age: 76 Year
  Sex: Male

DRUGS (1)
  1. SENSIPAR [Suspect]
     Indication: HYPERPARATHYROIDISM SECONDARY
     Dosage: 30 MG, QD
     Dates: start: 2011

REACTIONS (4)
  - Arteriovenous fistula operation [Fatal]
  - Bacterial toxaemia [Fatal]
  - Cardiac failure [Fatal]
  - Renal failure chronic [Fatal]
